FAERS Safety Report 22815042 (Version 3)
Quarter: 2023Q4

REPORT INFORMATION
  Report Type: Report from Study
  Country: IL (occurrence: IL)
  Receive Date: 20230811
  Receipt Date: 20231101
  Transmission Date: 20240110
  Serious: Yes (Hospitalization)
  Sender: FDA-Public Use
  Company Number: IL-JNJFOC-20230810414

PATIENT
  Age: 83 Year
  Sex: Female

DRUGS (3)
  1. DARATUMUMAB [Suspect]
     Active Substance: DARATUMUMAB
     Indication: Plasma cell myeloma
     Dosage: MOST RECENT DOSE 02-JUL-2023
     Route: 058
     Dates: start: 20190616, end: 20230702
  2. LENALIDOMIDE [Suspect]
     Active Substance: LENALIDOMIDE
     Indication: Plasma cell myeloma
     Dosage: MOST RECENT DOSE 02-JUL-2023
     Route: 048
     Dates: start: 20190616, end: 20230702
  3. DEXAMETHASONE [Suspect]
     Active Substance: DEXAMETHASONE
     Indication: Plasma cell myeloma
     Dosage: MOST RECENT DOSE 02-JUL-2023
     Route: 048
     Dates: start: 20190616, end: 20230702

REACTIONS (1)
  - Infection [Not Recovered/Not Resolved]

NARRATIVE: CASE EVENT DATE: 20230802
